FAERS Safety Report 16849841 (Version 1)
Quarter: 2019Q3

REPORT INFORMATION
  Report Type: Spontaneous
  Country: US (occurrence: US)
  Receive Date: 20190802
  Receipt Date: 20190802
  Transmission Date: 20191005
  Serious: Yes (Hospitalization)
  Sender: FDA-Public Use
  Company Number: None

PATIENT
  Age: 49 Year
  Sex: Male

DRUGS (11)
  1. FLUOROURACIL. [Suspect]
     Active Substance: FLUOROURACIL
     Indication: NEOPLASM MALIGNANT
     Dosage: ?          OTHER DOSE:2400  MG/M2;?
     Route: 042
     Dates: start: 20190429, end: 20190513
  2. POLYETHYLENE GLYCOL 3350. [Concomitant]
     Active Substance: POLYETHYLENE GLYCOL 3350
  3. PREDNISONE. [Concomitant]
     Active Substance: PREDNISONE
  4. LEUCOVORIN. [Suspect]
     Active Substance: LEUCOVORIN
  5. OXYCODONE [Concomitant]
     Active Substance: OXYCODONE
  6. PROCHLORPERAZINE. [Concomitant]
     Active Substance: PROCHLORPERAZINE
  7. REPAGLINIDE. [Concomitant]
     Active Substance: REPAGLINIDE
  8. OMEPRAZOLE. [Concomitant]
     Active Substance: OMEPRAZOLE
  9. ONDANSETRON [Concomitant]
     Active Substance: ONDANSETRON
  10. INSULIN [Concomitant]
     Active Substance: INSULIN NOS
  11. SENNA [Concomitant]
     Active Substance: SENNA LEAF\SENNOSIDES\SENNOSIDES A AND B

REACTIONS (2)
  - Neutropenia [None]
  - Pain [None]

NARRATIVE: CASE EVENT DATE: 20190513
